FAERS Safety Report 15725797 (Version 3)
Quarter: 2019Q1

REPORT INFORMATION
  Report Type: Spontaneous
  Country: JP (occurrence: JP)
  Receive Date: 20181216
  Receipt Date: 20190131
  Transmission Date: 20190417
  Serious: Yes (Other)
  Sender: FDA-Public Use
  Company Number: JP-TEVA-2018-JP-988724

PATIENT
  Age: 88 Year
  Sex: Male
  Weight: 46.7 kg

DRUGS (1)
  1. AZILECT [Suspect]
     Active Substance: RASAGILINE MESYLATE
     Indication: PARKINSON^S DISEASE
     Dosage: .5 MILLIGRAM DAILY;
     Route: 048
     Dates: start: 20181114, end: 20181122

REACTIONS (5)
  - Subarachnoid haemorrhage [Unknown]
  - Skin laceration [Recovering/Resolving]
  - Fall [Recovering/Resolving]
  - Dizziness [Unknown]
  - Contusion [Recovering/Resolving]

NARRATIVE: CASE EVENT DATE: 20181120
